FAERS Safety Report 10254759 (Version 2)
Quarter: 2014Q2

REPORT INFORMATION
  Report Type: Report from Study
  Country: US (occurrence: US)
  Receive Date: 20140624
  Receipt Date: 20140624
  Transmission Date: 20141212
  Serious: Yes (Other)
  Sender: FDA-Public Use
  Company Number: US-ROCHE-1389842

PATIENT
  Sex: Male
  Weight: 47.5 kg

DRUGS (2)
  1. NUTROPIN AQ [Suspect]
     Indication: GROWTH HORMONE DEFICIENCY
     Route: 058
  2. NUTROPIN AQ [Suspect]
     Route: 058

REACTIONS (3)
  - Growth retardation [Unknown]
  - Gastroenteritis viral [Unknown]
  - Drug dose omission [Unknown]
